FAERS Safety Report 11789389 (Version 1)
Quarter: 2015Q4

REPORT INFORMATION
  Report Type: Spontaneous
  Country: US (occurrence: US)
  Receive Date: 20151201
  Receipt Date: 20151201
  Transmission Date: 20160305
  Serious: No
  Sender: FDA-Public Use
  Company Number: US-VIIV HEALTHCARE LIMITED-US2015GSK165917

PATIENT
  Age: 48 Year
  Sex: Male

DRUGS (7)
  1. VITAMIN D3 [Concomitant]
     Active Substance: CHOLECALCIFEROL
  2. TIVICAY [Suspect]
     Active Substance: DOLUTEGRAVIR SODIUM
     Indication: HIV INFECTION
     Dosage: UNK, QD
     Route: 048
     Dates: start: 20150620, end: 20150630
  3. OMEGA 3 FISH OIL [Concomitant]
     Active Substance: FISH OIL\OMEGA-3 FATTY ACIDS
     Dosage: UNK
  4. REISHI MUSHROOM [Concomitant]
     Dosage: UNK
  5. MILK THISTLE [Suspect]
     Active Substance: MILK THISTLE
     Indication: LIVER DISORDER
     Dosage: 3 DF, QD
     Route: 048
     Dates: start: 20150620, end: 20150630
  6. COQ10 [Concomitant]
     Active Substance: UBIDECARENONE
     Dosage: UNK
  7. TUMERIC [Concomitant]
     Active Substance: TURMERIC
     Dosage: UNK

REACTIONS (3)
  - Hepatomegaly [Recovered/Resolved]
  - Hepatic enzyme increased [Recovered/Resolved]
  - Hepatic pain [Recovered/Resolved]

NARRATIVE: CASE EVENT DATE: 20150628
